FAERS Safety Report 9527945 (Version 1)
Quarter: 2013Q3

REPORT INFORMATION
  Report Type: Spontaneous
  Country: US (occurrence: US)
  Receive Date: 20130917
  Receipt Date: 20130917
  Transmission Date: 20140515
  Serious: Yes (Hospitalization)
  Sender: FDA-Public Use
  Company Number: US-JNJFOC-20130904581

PATIENT
  Age: 88 Year
  Sex: Male

DRUGS (2)
  1. ZYTIGA [Suspect]
     Indication: PROSTATE CANCER
     Dosage: SINCE 10 DAYS
     Route: 048
     Dates: start: 2013, end: 201309
  2. PREDNISONE [Concomitant]
     Route: 065

REACTIONS (5)
  - Dry mouth [Unknown]
  - Dysphagia [Unknown]
  - Nausea [Unknown]
  - Dehydration [Unknown]
  - Dyspnoea [Unknown]
